FAERS Safety Report 6523465-8 (Version None)
Quarter: 2009Q4

REPORT INFORMATION
  Report Type: 
  Country: None (occurrence: None)
  Receive Date: 20091231
  Receipt Date: 20091217
  Transmission Date: 20100525
  Serious: Yes (Hospitalization, Other)
  Sender: FDA-Public Use
  Company Number: PHHY2009FR58484

PATIENT
  Sex: Male

DRUGS (11)
  1. VOLTAREN [Suspect]
     Indication: PAIN IN EXTREMITY
     Dosage: UNK
     Route: 048
     Dates: start: 20090330, end: 20090402
  2. ACETAMINOPHEN AND CODEINE PHOSPHATE [Suspect]
     Indication: PAIN IN EXTREMITY
     Dosage: UNK
     Dates: start: 20090330, end: 20090402
  3. FUROSEMIDE [Suspect]
     Dosage: 80 MG, QD
  4. CRESTOR [Concomitant]
     Dosage: 5 MG, QD
  5. COZAAR [Concomitant]
     Dosage: 50 MG, QD
  6. AMIODARONE HCL [Concomitant]
     Dosage: 1 TABLET/DAY 5 DAYS PER WEEK
     Dates: end: 20090402
  7. HEMIGOXINE [Concomitant]
     Dosage: 1 DF, QD
     Dates: end: 20090402
  8. PROSCAR [Concomitant]
     Dosage: 1 DF, QD
  9. SYMBICORT [Concomitant]
     Dosage: 1 DF, BID
  10. RAUBASINE [Concomitant]
  11. DIHYDROERGOCRISTINE [Concomitant]

REACTIONS (14)
  - ABDOMINAL PAIN [None]
  - ABDOMINAL PAIN UPPER [None]
  - BRADYCARDIA [None]
  - CARDIOACTIVE DRUG LEVEL INCREASED [None]
  - GENERAL PHYSICAL HEALTH DETERIORATION [None]
  - HEPATIC VEIN DILATATION [None]
  - HEPATOSPLENOMEGALY [None]
  - NAUSEA [None]
  - PLEURAL EFFUSION [None]
  - RASH [None]
  - RENAL FAILURE ACUTE [None]
  - URINARY TRACT OBSTRUCTION [None]
  - URTICARIA [None]
  - VOMITING [None]
